FAERS Safety Report 7032141-7 (Version None)
Quarter: 2010Q4

REPORT INFORMATION
  Report Type: 
  Country: None (occurrence: None)
  Receive Date: 20101007
  Receipt Date: 20100217
  Transmission Date: 20110411
  Serious: Yes (Death)
  Sender: FDA-Public Use
  Company Number: DE-BRISTOL-MYERS SQUIBB COMPANY-14925416

PATIENT
  Age: 45 Year
  Sex: Female
  Weight: 51 kg

DRUGS (3)
  1. CETUXIMAB [Suspect]
     Indication: NON-SMALL CELL LUNG CANCER
     Dosage: CETUXIMAB 2 MG/ML 400MG(250MG/M2) 2 INF RECVD
     Route: 042
     Dates: start: 20091015, end: 20091222
  2. DOCETAXEL [Suspect]
     Indication: NON-SMALL CELL LUNG CANCER
     Dosage: 122MG 2ND INFUSION
     Route: 042
     Dates: start: 20091201, end: 20091222
  3. GEMZAR [Suspect]
     Indication: NON-SMALL CELL LUNG CANCER
     Dosage: 4TH INF
     Route: 042
     Dates: start: 20091015, end: 20091112

REACTIONS (3)
  - DYSPNOEA [None]
  - METASTASES TO LUNG [None]
  - PULMONARY EMBOLISM [None]
